FAERS Safety Report 19097687 (Version 2)
Quarter: 2021Q2

REPORT INFORMATION
  Report Type: Spontaneous
  Country: US (occurrence: US)
  Receive Date: 20210406
  Receipt Date: 20210511
  Transmission Date: 20210717
  Serious: No
  Sender: FDA-Public Use
  Company Number: US-SA-2021SA110798

PATIENT
  Age: 14 Year
  Sex: Male

DRUGS (3)
  1. ATIVAN [Concomitant]
     Active Substance: LORAZEPAM
  2. ALDURAZYME [Suspect]
     Active Substance: LARONIDASE
     Dosage: 2.9MG/5ML, QW
     Route: 042
     Dates: start: 202002, end: 20210501
  3. ALDURAZYME [Suspect]
     Active Substance: LARONIDASE
     Indication: MUCOPOLYSACCHARIDOSIS I
     Dosage: 23.2 MG, QW
     Route: 042
     Dates: start: 20200221

REACTIONS (2)
  - Injection site pain [Unknown]
  - Poor venous access [Unknown]

NARRATIVE: CASE EVENT DATE: 20210327
